FAERS Safety Report 5429841-9 (Version None)
Quarter: 2007Q3

REPORT INFORMATION
  Report Type: 
  Country: None (occurrence: None)
  Receive Date: 20070829
  Receipt Date: 20070821
  Transmission Date: 20080115
  Serious: Yes (Other)
  Sender: FDA-Public Use
  Company Number: US-PFIZER INC-2007060815

PATIENT
  Sex: Female
  Weight: 77 kg

DRUGS (5)
  1. CELEBREX [Suspect]
     Indication: ARTHRALGIA
  2. ROGAINE [Suspect]
     Indication: ALOPECIA
     Dates: start: 20070701
  3. CALCIUM [Concomitant]
  4. VITAMIN D [Concomitant]
  5. VITAMIN B [Concomitant]

REACTIONS (2)
  - ALOPECIA [None]
  - VITREOUS DETACHMENT [None]
